FAERS Safety Report 14803693 (Version 4)
Quarter: 2018Q2

REPORT INFORMATION
  Report Type: Report from Study
  Country: HU (occurrence: HU)
  Receive Date: 20180425
  Receipt Date: 20180625
  Transmission Date: 20180711
  Serious: Yes (Hospitalization)
  Sender: FDA-Public Use
  Company Number: HU-ROCHE-2109474

PATIENT
  Age: 71 Year
  Sex: Male
  Weight: 66 kg

DRUGS (20)
  1. ZANTAC [Concomitant]
     Active Substance: RANITIDINE HYDROCHLORIDE
     Route: 065
     Dates: start: 20180312, end: 20180322
  2. FRUCTOSE [Concomitant]
     Active Substance: FRUCTOSE
     Indication: DEHYDRATION
     Route: 065
     Dates: start: 20180413
  3. CONTROLOC [Concomitant]
     Active Substance: PANTOPRAZOLE SODIUM
     Route: 065
     Dates: start: 201412
  4. LOPERAMIDE [Concomitant]
     Active Substance: LOPERAMIDE
     Indication: DIARRHOEA
     Route: 065
     Dates: start: 20180410
  5. RINGERS SOLUTION [Concomitant]
     Active Substance: CALCIUM CHLORIDE\POTASSIUM CHLORIDE\SODIUM CHLORIDE
     Route: 065
     Dates: start: 20180413, end: 20180413
  6. TIAPRIDAL [Concomitant]
     Active Substance: TIAPRIDE HYDROCHLORIDE
     Indication: CONFUSIONAL STATE
     Route: 065
     Dates: start: 20180416, end: 20180420
  7. XILOX [Concomitant]
     Indication: TUMOUR PAIN
     Route: 065
     Dates: start: 20180131
  8. SMOFLIPID [Concomitant]
     Active Substance: FISH OIL\MEDIUM-CHAIN TRIGLYCERIDES\OLIVE OIL\SOYBEAN OIL
     Route: 065
     Dates: start: 20180312, end: 20180322
  9. ZANTAC [Concomitant]
     Active Substance: RANITIDINE HYDROCHLORIDE
     Indication: PROPHYLAXIS
     Route: 065
     Dates: start: 20180413
  10. RIVOTRIL [Concomitant]
     Active Substance: CLONAZEPAM
     Indication: CONFUSIONAL STATE
     Route: 065
     Dates: start: 20180417, end: 20180419
  11. AMINOVEN [Concomitant]
     Active Substance: AMINO ACIDS
     Route: 065
     Dates: start: 20180312, end: 20180322
  12. CALCIMUSC [Concomitant]
     Active Substance: CALCIUM GLUCONATE
     Indication: HYPOCALCAEMIA
     Route: 065
     Dates: start: 20180415
  13. COBIMETINIB. [Suspect]
     Active Substance: COBIMETINIB
     Indication: SQUAMOUS CELL CARCINOMA
     Dosage: DOSE OF LAST COBIMETINIB ADMINISTERED PRIOR TO COLITIS ONSET WAS 60 MG?DATE OF MOST RECENT DOSE OF C
     Route: 048
     Dates: start: 20180327
  14. COVERCARD [Concomitant]
     Active Substance: AMLODIPINE BESYLATE\PERINDOPRIL ARGININE
     Indication: HYPERTENSION
     Route: 065
     Dates: start: 201412
  15. DOLFORIN [Concomitant]
     Active Substance: FENTANYL
     Indication: TUMOUR PAIN
     Route: 065
     Dates: start: 20180131, end: 20180415
  16. NUTRICIA PRODUCT NOS [Concomitant]
     Indication: DECREASED APPETITE
     Route: 065
     Dates: start: 20180131
  17. CERUCAL [Concomitant]
     Active Substance: METOCLOPRAMIDE HYDROCHLORIDE
     Indication: NAUSEA
     Route: 065
     Dates: start: 20180413
  18. ATEZOLIZUMAB. [Suspect]
     Active Substance: ATEZOLIZUMAB
     Indication: SQUAMOUS CELL CARCINOMA
     Dosage: DOSE OF LAST ATEZOLIZUMAB ADMINISTERED PRIOR TO COLITIS ONSET WAS 840 MG.?DATE OF MOST RECENT DOSE O
     Route: 042
     Dates: start: 20180327
  19. CONTRAMAL [Concomitant]
     Active Substance: TRAMADOL HYDROCHLORIDE
     Indication: TUMOUR PAIN
     Route: 065
     Dates: start: 20180131
  20. MYCOSYST [Concomitant]
     Active Substance: FLUCONAZOLE
     Indication: STOMATITIS
     Route: 065
     Dates: start: 20180413

REACTIONS (1)
  - Colitis [Recovered/Resolved]

NARRATIVE: CASE EVENT DATE: 20180415
